FAERS Safety Report 17829992 (Version 1)
Quarter: 2020Q2

REPORT INFORMATION
  Report Type: Spontaneous
  Country: US (occurrence: US)
  Receive Date: 20200527
  Receipt Date: 20200527
  Transmission Date: 20200714
  Serious: No
  Sender: FDA-Public Use
  Company Number: US-009507513-2005USA000815

PATIENT
  Age: 20 Year
  Sex: Female
  Weight: 70.3 kg

DRUGS (2)
  1. NEXPLANON [Suspect]
     Active Substance: ETONOGESTREL
     Indication: CONTRACEPTION
     Dosage: 1 DOSAGE FORM, UNKNOWN
     Dates: end: 20200429
  2. NEXPLANON [Suspect]
     Active Substance: ETONOGESTREL
     Dosage: 1 IMPLANT IN THE LEFT ARM, EVERY 3 YEARS
     Route: 059
     Dates: start: 20200429

REACTIONS (6)
  - Device deployment issue [Recovered/Resolved]
  - Incorrect product administration duration [Unknown]
  - Device issue [Recovered/Resolved]
  - Complication of device removal [Recovered/Resolved]
  - Complication associated with device [Not Recovered/Not Resolved]
  - Implant site pain [Recovering/Resolving]

NARRATIVE: CASE EVENT DATE: 201907
